FAERS Safety Report 9351745 (Version 2)
Quarter: 2013Q3

REPORT INFORMATION
  Report Type: Spontaneous
  Country: FR (occurrence: FR)
  Receive Date: 20130617
  Receipt Date: 20130708
  Transmission Date: 20140515
  Serious: Yes (Hospitalization)
  Sender: FDA-Public Use
  Company Number: FR-BIOGENIDEC-2013BI052920

PATIENT
  Age: 46 Year
  Sex: Male
  Weight: 85 kg

DRUGS (1)
  1. TYSABRI [Suspect]
     Indication: MULTIPLE SCLEROSIS
     Route: 042
     Dates: start: 20100708

REACTIONS (2)
  - Acute coronary syndrome [Recovered/Resolved]
  - Sleep apnoea syndrome [Not Recovered/Not Resolved]
